FAERS Safety Report 5050326-6 (Version None)
Quarter: 2006Q3

REPORT INFORMATION
  Report Type: 
  Country: None (occurrence: None)
  Receive Date: 20060706
  Receipt Date: 20060621
  Transmission Date: 20061208
  Serious: Yes (Other)
  Sender: FDA-Public Use
  Company Number: 06-000569

PATIENT
  Age: 18 Year
  Sex: Male
  Weight: 68 kg

DRUGS (1)
  1. DORYX [Suspect]
     Indication: ACNE
     Dosage: 100 MG, TWICE DAILY, ORAL
     Route: 048
     Dates: start: 20060515, end: 20060619

REACTIONS (6)
  - ASTHENIA [None]
  - CHEST PAIN [None]
  - DYSPNOEA [None]
  - ODYNOPHAGIA [None]
  - OESOPHAGEAL ULCER [None]
  - WEIGHT DECREASED [None]
